FAERS Safety Report 16286634 (Version 1)
Quarter: 2019Q2

REPORT INFORMATION
  Report Type: Report from Study
  Country: US (occurrence: US)
  Receive Date: 20190508
  Receipt Date: 20190508
  Transmission Date: 20190711
  Serious: Yes (Hospitalization, Other)
  Sender: FDA-Public Use
  Company Number: US-SA-2019SA121884

PATIENT
  Age: 86 Year
  Sex: Female

DRUGS (1)
  1. INSULIN GLARGINE [Suspect]
     Active Substance: INSULIN GLARGINE
     Indication: DIABETES MELLITUS
     Dosage: 15 U, QD (AT NIGHT)
     Route: 058
     Dates: start: 1997

REACTIONS (6)
  - Autonomic neuropathy [Not Recovered/Not Resolved]
  - Lower limb fracture [Recovered/Resolved]
  - Atrial fibrillation [Not Recovered/Not Resolved]
  - Myocardial infarction [Recovered/Resolved]
  - Heart rate increased [Not Recovered/Not Resolved]
  - Hypoacusis [Not Recovered/Not Resolved]

NARRATIVE: CASE EVENT DATE: 2014
